FAERS Safety Report 6670758-X (Version None)
Quarter: 2010Q2

REPORT INFORMATION
  Report Type: 
  Country: None (occurrence: None)
  Receive Date: 20100407
  Receipt Date: 20100329
  Transmission Date: 20101027
  Serious: Yes (Other)
  Sender: FDA-Public Use
  Company Number: PHHY2009BR53180

PATIENT
  Sex: Female
  Weight: 74 kg

DRUGS (3)
  1. GALVUS MET [Suspect]
     Indication: TYPE 2 DIABETES MELLITUS
     Dosage: 1 DF, BID
     Route: 048
  2. LOSARTAN POTASSIUM [Concomitant]
     Indication: HYPERTENSION
     Dosage: 1 TABLET IN THE MORNING
     Route: 048
     Dates: start: 20080101
  3. AAS INFANTIL [Concomitant]
     Dosage: 1 TABLET AT LUNCH
     Route: 048

REACTIONS (5)
  - DECREASED APPETITE [None]
  - FATIGUE [None]
  - MYALGIA [None]
  - NAUSEA [None]
  - URINARY TRACT INFECTION [None]
